FAERS Safety Report 19487175 (Version 1)
Quarter: 2021Q3

REPORT INFORMATION
  Report Type: Spontaneous
  Country: FR (occurrence: FR)
  Receive Date: 20210702
  Receipt Date: 20210702
  Transmission Date: 20211014
  Serious: Yes (Other)
  Sender: FDA-Public Use
  Company Number: FR-ROCHE-2857566

PATIENT
  Age: 59 Year
  Sex: Female
  Weight: 59 kg

DRUGS (2)
  1. AVASTIN [Suspect]
     Active Substance: BEVACIZUMAB
     Indication: BRONCHIAL CARCINOMA
     Route: 041
     Dates: start: 20210210, end: 202105
  2. PACLITAXEL ACCORD [Concomitant]
     Active Substance: PACLITAXEL
     Indication: BRONCHIAL CARCINOMA
     Route: 041
     Dates: start: 20210210

REACTIONS (2)
  - Renal artery dissection [Not Recovered/Not Resolved]
  - Hypertension [Recovered/Resolved with Sequelae]

NARRATIVE: CASE EVENT DATE: 202105
